FAERS Safety Report 9435073 (Version 1)
Quarter: 2013Q3

REPORT INFORMATION
  Report Type: Spontaneous
  Country: SE (occurrence: SE)
  Receive Date: 20130801
  Receipt Date: 20130801
  Transmission Date: 20140515
  Serious: Yes (Hospitalization)
  Sender: FDA-Public Use
  Company Number: SE-MALLINCKRODT-T201303870

PATIENT
  Age: 54 Year
  Sex: Female

DRUGS (1)
  1. OPTIRAY 350 [Suspect]
     Indication: PRODUCT USED FOR UNKNOWN INDICATION
     Dosage: 104 ML, SINGLE
     Route: 042
     Dates: start: 20130626, end: 20130626

REACTIONS (3)
  - Hypersensitivity [Recovered/Resolved]
  - Pharyngeal oedema [Recovered/Resolved]
  - Dyspnoea [Recovered/Resolved]
